FAERS Safety Report 10202985 (Version 2)
Quarter: 2014Q2

REPORT INFORMATION
  Report Type: Report from Study
  Country: MX (occurrence: MX)
  Receive Date: 20140528
  Receipt Date: 20140605
  Transmission Date: 20141212
  Serious: Yes (Other)
  Sender: FDA-Public Use
  Company Number: PHHY2014MX065436

PATIENT
  Age: 74 Year
  Sex: Female

DRUGS (2)
  1. CO-DIOVAN [Suspect]
     Indication: HYPERTENSION
     Dosage: 2 DF (160/12.5 MG), DAILY
     Route: 048
  2. ASPIRIN PROTECT [Concomitant]
     Indication: PROPHYLAXIS
     Dosage: 1 UKN, DAILY

REACTIONS (4)
  - Diabetes mellitus [Unknown]
  - Blood cholesterol abnormal [Not Recovered/Not Resolved]
  - Blood pressure increased [Recovered/Resolved]
  - Drug ineffective [Recovered/Resolved]
